FAERS Safety Report 6491316-6 (Version None)
Quarter: 2009Q4

REPORT INFORMATION
  Report Type: 
  Country: None (occurrence: None)
  Receive Date: 20091211
  Receipt Date: 20091130
  Transmission Date: 20100525
  Serious: Yes (Other)
  Sender: FDA-Public Use
  Company Number: FR-ELI_LILLY_AND_COMPANY-FR200912000146

PATIENT
  Age: 66 Year
  Sex: Female
  Weight: 94 kg

DRUGS (9)
  1. BYETTA [Suspect]
     Indication: TYPE 2 DIABETES MELLITUS
     Dosage: 10 UG, 2/D
     Route: 058
     Dates: start: 20090301, end: 20091006
  2. TENORMIN [Concomitant]
     Dosage: UNK, UNKNOWN
     Route: 048
  3. NOVONORM [Concomitant]
     Dosage: UNK, UNKNOWN
     Route: 065
  4. TAHOR [Concomitant]
     Dosage: UNK, UNKNOWN
     Route: 048
  5. METFORMIN HCL [Concomitant]
     Dosage: UNK, UNKNOWN
     Route: 065
  6. COVERSYL [Concomitant]
     Dosage: UNK, UNKNOWN
     Route: 048
  7. FLUOXETINE [Concomitant]
     Dosage: UNK, UNKNOWN
     Route: 065
  8. PLAVIX [Concomitant]
     Dosage: UNK, UNKNOWN
     Route: 065
  9. KARDEGIC [Concomitant]
     Dosage: UNK, UNKNOWN
     Route: 065

REACTIONS (3)
  - ABDOMINAL PAIN UPPER [None]
  - LIPASE INCREASED [None]
  - NAUSEA [None]
